FAERS Safety Report 7399955-5 (Version None)
Quarter: 2011Q2

REPORT INFORMATION
  Report Type: 
  Country: None (occurrence: None)
  Receive Date: 20110407
  Receipt Date: 20110404
  Transmission Date: 20111010
  Serious: No
  Sender: FDA-Public Use
  Company Number: US-TEVA-274790USA

PATIENT
  Sex: Male

DRUGS (3)
  1. SERTRALINE HYDROCHLORIDE [Concomitant]
  2. ALBUTEROL SULFATE AUTOHALER [Suspect]
     Route: 055
  3. FLUTICASONE PROPIONATE [Concomitant]

REACTIONS (1)
  - BREATH ALCOHOL TEST POSITIVE [None]
